FAERS Safety Report 9065159 (Version 1)
Quarter: 2013Q1

REPORT INFORMATION
  Report Type: Report from Study
  Country: US (occurrence: US)
  Receive Date: 20130131
  Receipt Date: 20130131
  Transmission Date: 20140127
  Serious: No
  Sender: FDA-Public Use
  Company Number: US-ABBOTT-12P-163-1015473-00

PATIENT
  Age: 53 Year
  Sex: Female

DRUGS (16)
  1. HUMIRA [Suspect]
     Indication: CROHN^S DISEASE
     Dates: start: 20121114, end: 20121114
  2. HUMIRA [Suspect]
     Dosage: 80MG ON 28 NOV 2012
     Dates: start: 20121128, end: 20121128
  3. HUMIRA [Suspect]
  4. ASACOL [Concomitant]
     Indication: CROHN^S DISEASE
  5. PANTOPRAZOLE [Concomitant]
     Indication: GASTROOESOPHAGEAL REFLUX DISEASE
     Dosage: AT BEDTIME
  6. FOLIC ACID [Concomitant]
     Indication: PRODUCT USED FOR UNKNOWN INDICATION
  7. ASPIRIN [Concomitant]
     Indication: PRODUCT USED FOR UNKNOWN INDICATION
  8. MULTIVITAMIN [Concomitant]
     Indication: PRODUCT USED FOR UNKNOWN INDICATION
     Dosage: DAILY
  9. METOCLOPRAMIDE [Concomitant]
     Indication: GASTROOESOPHAGEAL REFLUX DISEASE
  10. DIOVAN [Concomitant]
     Indication: BLOOD PRESSURE
  11. HYDROCHLOROTHIAZIDE [Concomitant]
     Indication: BLOOD PRESSURE
  12. VITAMIN D3 [Concomitant]
     Indication: PRODUCT USED FOR UNKNOWN INDICATION
  13. WELCHOL [Concomitant]
     Indication: CROHN^S DISEASE
  14. BUDESONIDE [Concomitant]
     Indication: CROHN^S DISEASE
     Dosage: 3 CAPSULES DAILY
  15. METFORMIN [Concomitant]
     Indication: DIABETES MELLITUS
     Dosage: 1 IN AM, 2 IN PM
  16. LEVOXYL [Concomitant]
     Indication: THYROID CANCER
     Dosage: 175MCG

REACTIONS (3)
  - Wrong technique in drug usage process [Unknown]
  - Incorrect dose administered [Unknown]
  - Injection site pain [Unknown]
